FAERS Safety Report 6148591-7 (Version None)
Quarter: 2009Q2

REPORT INFORMATION
  Report Type: 
  Country: None (occurrence: None)
  Receive Date: 20090406
  Receipt Date: 20090406
  Transmission Date: 20091009
  Serious: Yes (Life-Threatening, Hospitalization)
  Sender: FDA-Public Use
  Company Number: None

PATIENT
  Age: 79 Year
  Sex: Female
  Weight: 94.8018 kg

DRUGS (1)
  1. LIPITOR [Suspect]
     Dosage: SEVERAL YEARS

REACTIONS (4)
  - HEPATIC FAILURE [None]
  - MYALGIA [None]
  - POISONING [None]
  - RENAL FAILURE [None]
